FAERS Safety Report 23435884 (Version 8)
Quarter: 2024Q3

REPORT INFORMATION
  Report Type: Report from Study
  Country: CO (occurrence: CO)
  Receive Date: 20240124
  Receipt Date: 20240720
  Transmission Date: 20241016
  Serious: Yes (Hospitalization, Other)
  Sender: JOHNSON AND JOHNSON
  Company Number: CO-JNJFOC-20231213793

PATIENT
  Age: 55 Year
  Sex: Male
  Weight: 75 kg

DRUGS (1)
  1. SIMPONI [Suspect]
     Active Substance: GOLIMUMAB
     Indication: Fibromyalgia
     Dosage: TREATMENT START DATE, ALSO REPORTED AS 15-JUL-2021.?LAST DRUG APPLICATION: 28-NOV-2023(ALSO REPORTED
     Route: 058
     Dates: start: 20210615, end: 20231212

REACTIONS (4)
  - Urinary tract infection [Recovered/Resolved with Sequelae]
  - Prostatic operation [Recovered/Resolved]
  - Therapeutic response decreased [Unknown]
  - Product prescribing issue [Unknown]

NARRATIVE: CASE EVENT DATE: 20231102
